FAERS Safety Report 6244794-1 (Version None)
Quarter: 2009Q2

REPORT INFORMATION
  Report Type: 
  Country: None (occurrence: None)
  Receive Date: 20090619
  Receipt Date: 20090420
  Transmission Date: 20091009
  Serious: No
  Sender: FDA-Public Use
  Company Number: ALL1-2009-01042

PATIENT
  Age: 42 Year
  Sex: Female
  Weight: 63.5 kg

DRUGS (3)
  1. VYVANSE [Suspect]
     Dosage: 30 MG, 1X/DAY:QD, ORAL
     Route: 048
     Dates: start: 20090403
  2. BENADRYL [Concomitant]
  3. ACIPHEX [Concomitant]

REACTIONS (3)
  - CONDITION AGGRAVATED [None]
  - CYSTITIS [None]
  - PREMENSTRUAL SYNDROME [None]
